FAERS Safety Report 16681504 (Version 1)
Quarter: 2019Q3

REPORT INFORMATION
  Report Type: Spontaneous
  Country: US (occurrence: US)
  Receive Date: 20190807
  Receipt Date: 20190807
  Transmission Date: 20191007
  Serious: Yes (Hospitalization, Other)
  Sender: FDA-Public Use
  Company Number: None

PATIENT
  Age: 58 Year
  Sex: Female
  Weight: 87.75 kg

DRUGS (16)
  1. BONIVA [Concomitant]
     Active Substance: IBANDRONATE SODIUM
  2. FLUTICASONE NASAL SPRAY 50 MG [Concomitant]
  3. HYDROXYZINE HCL 25 MG [Concomitant]
     Active Substance: HYDROXYZINE HYDROCHLORIDE
  4. MULTI VITAMIN ONE A DAY WOMEN^S 50+ [Concomitant]
  5. IBIUPROFEN TABS 200 MG AS NEEDED [Concomitant]
  6. ROSUVASTATIN CALCIUM 5 MG [Concomitant]
     Active Substance: ROSUVASTATIN CALCIUM
  7. FUROSEMIDE 20 MG [Concomitant]
     Active Substance: FUROSEMIDE
  8. CETIRIZINE HYDROCHLORIDE TABS 10 MG [Concomitant]
  9. TURMERIC CURCUMIN 500 MG [Concomitant]
  10. LYRICA [Concomitant]
     Active Substance: PREGABALIN
  11. TYLENOL ARTHRITIS 650 MG [Concomitant]
  12. CITRACAL SLOW RELEASE 1,200 [Concomitant]
  13. OMEPRAZOLE DR 40 MG [Concomitant]
  14. VITAMIN C 1,000MG [Concomitant]
  15. LISINOPRIL 20 MG [Concomitant]
     Active Substance: LISINOPRIL
  16. LOSARTAN POTASSIUM TABLETS 100 MG [Suspect]
     Active Substance: LOSARTAN POTASSIUM
     Indication: HYPERTENSION
     Route: 048
     Dates: start: 20140721, end: 20190106

REACTIONS (6)
  - Metastases to lymph nodes [None]
  - Mastectomy [None]
  - Recalled product administered [None]
  - Invasive ductal breast carcinoma [None]
  - Product contamination chemical [None]
  - Lymphoedema [None]

NARRATIVE: CASE EVENT DATE: 20150730
